FAERS Safety Report 25996396 (Version 1)
Quarter: 2025Q4

REPORT INFORMATION
  Report Type: Spontaneous
  Country: CA (occurrence: CA)
  Receive Date: 20251104
  Receipt Date: 20251104
  Transmission Date: 20260118
  Serious: Yes (Other)
  Sender: Kenvue
  Company Number: CA-KENVUE-20251012128

PATIENT

DRUGS (37)
  1. ACETAMINOPHEN [Suspect]
     Active Substance: ACETAMINOPHEN
     Indication: Pyrexia
     Dosage: UNK
     Route: 065
  2. ACETAMINOPHEN [Suspect]
     Active Substance: ACETAMINOPHEN
     Indication: Illness
     Dosage: UNK UNK, AS NEEDED (AS REQUIRED)
     Route: 065
  3. AMLODIPINE BESYLATE [Concomitant]
     Active Substance: AMLODIPINE BESYLATE
     Indication: Product used for unknown indication
     Dosage: UNK
     Route: 065
  4. ASPIRIN [Concomitant]
     Active Substance: ASPIRIN
     Indication: Product used for unknown indication
     Dosage: UNK
     Route: 065
  5. BETAMETHASONE VALERATE [Concomitant]
     Active Substance: BETAMETHASONE VALERATE
     Indication: Dermatitis bullous
     Dosage: 0.05 PERCENT
     Route: 065
  6. CEFAZOLIN SODIUM [Concomitant]
     Active Substance: CEFAZOLIN SODIUM
     Indication: Rash erythematous
     Dosage: UNK
     Route: 065
  7. CEFAZOLIN SODIUM [Concomitant]
     Active Substance: CEFAZOLIN SODIUM
     Indication: Dermatitis bullous
     Dosage: UNK
     Route: 065
  8. CLOBETASOL [Concomitant]
     Active Substance: CLOBETASOL
     Indication: Blister
     Dosage: 0.05 PERCENT
     Route: 065
  9. DAPSONE [Concomitant]
     Active Substance: DAPSONE
     Indication: Pruritus
     Dosage: 2.0 MILLIGRAM/KILOGRAM, ONCE A DAY
     Route: 065
  10. DAPSONE [Concomitant]
     Active Substance: DAPSONE
     Indication: Linear IgA disease
     Dosage: 1.3 MILLIGRAM/KILOGRAM, ONCE A DAY
     Route: 065
  11. DAPSONE [Concomitant]
     Active Substance: DAPSONE
     Dosage: 1 MILLIGRAM/KILOGRAM, ONCE A DAY
     Route: 065
  12. DAPSONE [Concomitant]
     Active Substance: DAPSONE
     Indication: Pruritus
     Dosage: 2 MILLIGRAM/KILOGRAM
     Route: 065
  13. DAPSONE [Concomitant]
     Active Substance: DAPSONE
     Indication: Linear IgA disease
  14. DAPSONE [Concomitant]
     Active Substance: DAPSONE
     Indication: Pruritus
     Dosage: 5.0 PERCENT
     Route: 061
  15. DAPSONE [Concomitant]
     Active Substance: DAPSONE
     Indication: Linear IgA disease
  16. DOXEPIN HYDROCHLORIDE [Concomitant]
     Active Substance: DOXEPIN HYDROCHLORIDE
     Indication: Pruritus
     Dosage: UNK
     Route: 065
  17. DOXEPIN HYDROCHLORIDE [Concomitant]
     Active Substance: DOXEPIN HYDROCHLORIDE
     Indication: Blister
     Dosage: UNK
     Route: 048
  18. ENALAPRIL [Concomitant]
     Active Substance: ENALAPRIL
     Indication: Product used for unknown indication
     Dosage: UNK
     Route: 065
  19. FLOVENT [Concomitant]
     Active Substance: FLUTICASONE PROPIONATE
     Indication: Wound
     Dosage: UNK
     Route: 065
  20. HYDROXYZINE [Concomitant]
     Active Substance: HYDROXYZINE HYDROCHLORIDE
     Indication: Pruritus
     Dosage: UNK
     Route: 065
  21. HYDROXYZINE [Concomitant]
     Active Substance: HYDROXYZINE HYDROCHLORIDE
     Indication: Blister
     Dosage: UNK
     Route: 048
  22. MEROPENEM [Concomitant]
     Active Substance: MEROPENEM
     Indication: Urinary tract infection
     Dosage: UNK
     Route: 065
  23. METHYLENE BLUE [Concomitant]
     Active Substance: METHYLENE BLUE
     Indication: Methaemoglobinaemia
     Dosage: UNK
     Route: 065
  24. METHYLPREDNISOLONE ACETATE [Concomitant]
     Active Substance: METHYLPREDNISOLONE ACETATE
     Indication: Methaemoglobinaemia
     Dosage: 1 MILLIGRAM/KILOGRAM, ONCE A DAY
     Route: 065
  25. MUPIROCIN [Concomitant]
     Active Substance: MUPIROCIN
     Indication: Ulcer
     Dosage: 2 PERCENT
     Route: 065
  26. OMALIZUMAB [Concomitant]
     Active Substance: OMALIZUMAB
     Indication: Pruritus
     Dosage: UNK
     Route: 065
  27. PIPERACILLIN AND TAZOBACTAM [Concomitant]
     Active Substance: PIPERACILLIN SODIUM\TAZOBACTAM SODIUM
     Indication: Rash erythematous
     Dosage: UNK
     Route: 065
  28. PIPERACILLIN AND TAZOBACTAM [Concomitant]
     Active Substance: PIPERACILLIN SODIUM\TAZOBACTAM SODIUM
     Indication: Dermatitis bullous
     Dosage: UNK
     Route: 065
  29. PREDNISONE [Concomitant]
     Active Substance: PREDNISONE
     Indication: Linear IgA disease
     Dosage: 0.1 MILLIGRAM/KILOGRAM
     Route: 065
  30. PREDNISONE [Concomitant]
     Active Substance: PREDNISONE
     Indication: Immunosuppression
     Dosage: 0.1 MILLIGRAM/KILOGRAM, ONCE A DAY
     Route: 065
  31. RITUXIMAB [Concomitant]
     Active Substance: RITUXIMAB
     Indication: Blister
     Dosage: 4 DOSAGE FORM
     Route: 065
  32. RUPATADINE [Concomitant]
     Active Substance: RUPATADINE
     Indication: Pruritus
     Dosage: UNK
     Route: 065
  33. RUPATADINE [Concomitant]
     Active Substance: RUPATADINE
     Indication: Blister
     Dosage: UNK
     Route: 048
  34. TACROLIMUS [Concomitant]
     Active Substance: TACROLIMUS
     Indication: Wound
     Dosage: 3 PERCENT
     Route: 065
  35. SULFAMETHOXAZOLE\TRIMETHOPRIM [Concomitant]
     Active Substance: SULFAMETHOXAZOLE\TRIMETHOPRIM
     Indication: Pneumocystis jirovecii pneumonia
     Dosage: UNK
     Route: 065
  36. VANCOMYCIN [Concomitant]
     Active Substance: VANCOMYCIN
     Indication: Rash erythematous
     Dosage: UNK
     Route: 065
  37. VANCOMYCIN [Concomitant]
     Active Substance: VANCOMYCIN
     Indication: Dermatitis bullous
     Dosage: UNK
     Route: 065

REACTIONS (2)
  - Condition aggravated [Recovering/Resolving]
  - Linear IgA disease [Recovering/Resolving]
